FAERS Safety Report 5567983-8 (Version None)
Quarter: 2007Q4

REPORT INFORMATION
  Report Type: 
  Country: None (occurrence: None)
  Receive Date: 20071218
  Receipt Date: 20071218
  Transmission Date: 20080405
  Serious: No
  Sender: FDA-Public Use
  Company Number: None

PATIENT
  Age: 25 Year
  Sex: Male
  Weight: 90.7194 kg

DRUGS (5)
  1. LITHIUM CITRATE [Suspect]
     Dosage: 600MG PO
     Route: 048
  2. RISPERIDONE CONC [Concomitant]
  3. HALDOL [Concomitant]
  4. ZYDIS [Concomitant]
  5. BENZTROPINE [Concomitant]

REACTIONS (2)
  - DEHYDRATION [None]
  - THERAPEUTIC AGENT TOXICITY [None]
